FAERS Safety Report 8328512-9 (Version None)
Quarter: 2012Q2

REPORT INFORMATION
  Report Type: 
  Country: None (occurrence: None)
  Receive Date: 20120502
  Receipt Date: 20120426
  Transmission Date: 20120825
  Serious: No
  Sender: FDA-Public Use
  Company Number: US-TEVA-335279USA

PATIENT
  Sex: Female

DRUGS (1)
  1. PLAN B [Suspect]
     Indication: POST COITAL CONTRACEPTION
     Route: 048

REACTIONS (1)
  - MENORRHAGIA [None]
